FAERS Safety Report 7575467-0 (Version None)
Quarter: 2011Q2

REPORT INFORMATION
  Report Type: 
  Country: None (occurrence: None)
  Receive Date: 20110627
  Receipt Date: 20110623
  Transmission Date: 20111010
  Serious: Yes (Death, Other)
  Sender: FDA-Public Use
  Company Number: GB-NAPPMUNDI-GBR-2010-0007034

PATIENT
  Sex: Male

DRUGS (7)
  1. BUPRENORPHINE [Suspect]
     Dosage: 5 MCG, Q1H
     Route: 062
     Dates: start: 20100201
  2. VALSARTAN [Concomitant]
  3. ACETAMINOPHEN AND CODEINE PHOSPHATE [Concomitant]
     Indication: ARTHRALGIA
     Dosage: UNK
     Route: 048
  4. DOXAZOSIN MESYLATE [Concomitant]
  5. ACETAMINOPHEN [Concomitant]
  6. BUPRENORPHINE [Suspect]
     Indication: ARTHRALGIA
     Dosage: 10 MCG, Q1H
     Route: 062
  7. EZETIMIBE [Concomitant]

REACTIONS (3)
  - ADVERSE DRUG REACTION [None]
  - COMPLETED SUICIDE [None]
  - INADEQUATE ANALGESIA [None]
